FAERS Safety Report 8552445-6 (Version None)
Quarter: 2012Q3

REPORT INFORMATION
  Report Type: 
  Country: None (occurrence: None)
  Receive Date: 20120731
  Receipt Date: 20120718
  Transmission Date: 20120928
  Serious: No
  Sender: FDA-Public Use
  Company Number: US-JNJFOC-20120709794

PATIENT
  Sex: Male

DRUGS (5)
  1. INVEGA SUSTENNA [Suspect]
     Indication: SCHIZOAFFECTIVE DISORDER
     Route: 030
     Dates: start: 20111101
  2. TRILEPTAL [Concomitant]
     Route: 048
  3. LEXAPRO [Concomitant]
     Indication: SCHIZOAFFECTIVE DISORDER
     Route: 048
  4. COGENTIN [Concomitant]
     Route: 048
  5. ATIVAN [Concomitant]
     Route: 048

REACTIONS (1)
  - FATIGUE [None]
